FAERS Safety Report 9843704 (Version 2)
Quarter: 2014Q2

REPORT INFORMATION
  Report Type: Spontaneous
  Country: US (occurrence: None)
  Receive Date: 20131127
  Receipt Date: 20131127
  Transmission Date: 20141212
  Serious: No
  Sender: FDA-Public Use
  Company Number: 218738LEO

PATIENT
  Sex: Male

DRUGS (1)
  1. PICATO GEL [Suspect]
     Indication: ACTINIC KERATOSIS
     Dosage: 1 IN 1D TOPICAL
     Route: 061

REACTIONS (4)
  - Application site discharge [None]
  - Application site erythema [None]
  - Incorrect dose administered [None]
  - Off label use [None]
